FAERS Safety Report 19993874 (Version 2)
Quarter: 2023Q2

REPORT INFORMATION
  Report Type: Spontaneous
  Country: US (occurrence: US)
  Receive Date: 20211025
  Receipt Date: 20230411
  Transmission Date: 20230721
  Serious: No
  Sender: FDA-Public Use
  Company Number: US-TAKEDA-2021TUS064891

PATIENT
  Sex: Female

DRUGS (2)
  1. VYVANSE [Suspect]
     Active Substance: LISDEXAMFETAMINE DIMESYLATE
     Indication: Product used for unknown indication
     Dosage: 70 MILLIGRAM
     Route: 065
  2. VYVANSE [Suspect]
     Active Substance: LISDEXAMFETAMINE DIMESYLATE
     Dosage: 70 MILLIGRAM
     Route: 065

REACTIONS (3)
  - Therapeutic product effect incomplete [Unknown]
  - Product physical issue [Unknown]
  - Manufacturing issue [Unknown]
